FAERS Safety Report 4424300-4 (Version None)
Quarter: 2004Q3

REPORT INFORMATION
  Report Type: 
  Country: None (occurrence: None)
  Receive Date: 20040806
  Receipt Date: 20040806
  Transmission Date: 20050211
  Serious: Yes (Other)
  Sender: FDA-Public Use
  Company Number: None

PATIENT
  Sex: Female
  Weight: 63.5036 kg

DRUGS (1)
  1. ORTHO EVRA [Suspect]
     Indication: SKIN HYPERPIGMENTATION
     Dosage: ONE PATCH  1PATCH X 3  TRANSDERMAL
     Route: 062

REACTIONS (4)
  - APPLICATION SITE DISCOLOURATION [None]
  - APPLICATION SITE PIGMENTATION CHANGES [None]
  - APPLICATION SITE REACTION [None]
  - APPLICATION SITE SCAR [None]
